FAERS Safety Report 6637428-5 (Version None)
Quarter: 2010Q1

REPORT INFORMATION
  Report Type: 
  Country: None (occurrence: None)
  Receive Date: 20100311
  Receipt Date: 20100223
  Transmission Date: 20100710
  Serious: Yes (Disabling)
  Sender: FDA-Public Use
  Company Number: APP201000105

PATIENT
  Age: 77 Year
  Sex: Female

DRUGS (8)
  1. AMIODARONE HYDROCHLORIDE [Suspect]
     Indication: DRUG USE FOR UNKNOWN INDICATION
     Dosage: 400 MG, 1 IN 1 D
  2. FLUNARIZINE (FLUNARIZINE) [Suspect]
     Indication: DRUG USE FOR UNKNOWN INDICATION
     Dosage: 10 MG, 1 IN 1 D
  3. LEVOTHYROXINE SODIUM FOR INJECTION (LEVOTHYROXINE SODIUM) [Concomitant]
  4. CAPTOPRIL [Concomitant]
  5. TRIMETADIZINE [Concomitant]
  6. LEVODOPA/BENSERAZIDE (LEVODOPA) [Concomitant]
  7. BIPERIDEN HYDROCHLORIDE TAB [Concomitant]
  8. AMANTADINE HCL [Concomitant]

REACTIONS (1)
  - SUPRANUCLEAR PALSY [None]
